FAERS Safety Report 6801916-9 (Version None)
Quarter: 2010Q2

REPORT INFORMATION
  Report Type: 
  Country: None (occurrence: None)
  Receive Date: 20100629
  Receipt Date: 20100618
  Transmission Date: 20101027
  Serious: Yes (Death, Hospitalization)
  Sender: FDA-Public Use
  Company Number: ES-ROCHE-710708

PATIENT
  Sex: Male

DRUGS (4)
  1. PEGINTERFERON ALFA-2A [Suspect]
     Indication: HEPATITIS C
     Route: 065
     Dates: start: 20050610, end: 20060601
  2. PEGINTERFERON ALFA-2A [Suspect]
     Route: 065
     Dates: start: 20080708, end: 20080801
  3. RIBAVIRIN [Suspect]
     Indication: HEPATITIS C
     Route: 065
     Dates: start: 20050610, end: 20060601
  4. RIBAVIRIN [Suspect]
     Route: 065
     Dates: start: 20080708, end: 20080801

REACTIONS (7)
  - BRAIN OEDEMA [None]
  - DEATH [None]
  - HEPATIC ENCEPHALOPATHY [None]
  - HEPATIC FAILURE [None]
  - NEUTROPENIA [None]
  - RENAL FAILURE [None]
  - THROMBOCYTOPENIA [None]
